FAERS Safety Report 4895605-8 (Version None)
Quarter: 2006Q1

REPORT INFORMATION
  Report Type: 
  Country: None (occurrence: None)
  Receive Date: 20060125
  Receipt Date: 20060112
  Transmission Date: 20060701
  Serious: Yes (Hospitalization)
  Sender: FDA-Public Use
  Company Number: 2006SP000208

PATIENT
  Age: 47 Year
  Sex: Female
  Weight: 68.9467 kg

DRUGS (15)
  1. LUNESTA [Suspect]
     Indication: INSOMNIA
     Dosage: 2 MG; HS; ORAL
     Route: 048
     Dates: start: 20050801, end: 20050901
  2. LUNESTA [Suspect]
     Indication: INSOMNIA
     Dosage: 2 MG; HS; ORAL
     Route: 048
     Dates: start: 20050901, end: 20060106
  3. REMICADE [Suspect]
     Indication: JUVENILE ARTHRITIS
     Dosage: INTRAVENOUS
     Route: 042
  4. PREDNISONE [Suspect]
     Indication: JUVENILE ARTHRITIS
     Dosage: 8 MG; QD; ORAL
     Route: 048
  5. ZOLOFT [Concomitant]
  6. PREDNISONE [Concomitant]
  7. DONNATAL [Concomitant]
  8. FOLIC ACID [Concomitant]
  9. METHOTREXATE [Concomitant]
  10. MOBIC [Concomitant]
  11. ESTROGENS [Concomitant]
  12. REMICADE [Concomitant]
  13. AMOXICILLIN AND CLAVULANATE POTASSIUM [Concomitant]
  14. LEVAQUIN [Concomitant]
  15. CIPROFLOXACIN [Concomitant]

REACTIONS (12)
  - CHEST PAIN [None]
  - CONDITION AGGRAVATED [None]
  - DEHYDRATION [None]
  - DEPRESSION [None]
  - DYSPNOEA [None]
  - EYE PAIN [None]
  - FURUNCLE [None]
  - IMMUNOSUPPRESSION [None]
  - INITIAL INSOMNIA [None]
  - STAPHYLOCOCCAL INFECTION [None]
  - SUICIDAL IDEATION [None]
  - URINARY TRACT INFECTION [None]
